FAERS Safety Report 22311474 (Version 1)
Quarter: 2023Q2

REPORT INFORMATION
  Report Type: Report from Study
  Country: FR (occurrence: FR)
  Receive Date: 20230511
  Receipt Date: 20230511
  Transmission Date: 20230721
  Serious: Yes (Hospitalization)
  Sender: FDA-Public Use
  Company Number: FR-GILEAD-2023-0627882

PATIENT
  Sex: Female
  Weight: 97.6 kg

DRUGS (5)
  1. SACITUZUMAB GOVITECAN-HZIY [Suspect]
     Active Substance: SACITUZUMAB GOVITECAN-HZIY
     Indication: Triple negative breast cancer
     Route: 042
  2. PACLITAXEL [Suspect]
     Active Substance: PACLITAXEL
     Indication: Triple negative breast cancer
     Dosage: 197 MG
     Route: 042
     Dates: start: 20230314, end: 20230314
  3. PACLITAXEL [Suspect]
     Active Substance: PACLITAXEL
     Dosage: 197 MG
     Route: 042
     Dates: start: 20230321, end: 20230321
  4. PACLITAXEL [Suspect]
     Active Substance: PACLITAXEL
     Dosage: 197 MG
     Route: 042
     Dates: start: 20230328, end: 20230328
  5. PACLITAXEL [Suspect]
     Active Substance: PACLITAXEL
     Dosage: 197 MG
     Route: 042
     Dates: start: 20230411, end: 20230411

REACTIONS (1)
  - Febrile bone marrow aplasia [Not Recovered/Not Resolved]

NARRATIVE: CASE EVENT DATE: 20230508
